FAERS Safety Report 18689639 (Version 1)
Quarter: 2020Q4

REPORT INFORMATION
  Report Type: Report from Study
  Country: IN (occurrence: IN)
  Receive Date: 20201231
  Receipt Date: 20201231
  Transmission Date: 20210114
  Serious: Yes (Hospitalization)
  Sender: FDA-Public Use
  Company Number: IN-ASTRAZENECA-2020SF68242

PATIENT
  Age: 68 Year
  Sex: Male

DRUGS (6)
  1. BRILINTA [Suspect]
     Active Substance: TICAGRELOR
     Indication: CARDIAC DISORDER
     Route: 048
  2. NATRILIX SR [Concomitant]
     Active Substance: INDAPAMIDE
     Indication: BLOOD PRESSURE ABNORMAL
     Dosage: EVERY 12 HOURS
     Route: 048
  3. SELOKEN XL [Concomitant]
     Indication: BLOOD PRESSURE ABNORMAL
     Dosage: EVERY 12 HOURS
     Route: 048
  4. ECOSRPIN [Concomitant]
     Indication: CARDIAC DISORDER
     Route: 048
  5. ATORVA [Concomitant]
     Active Substance: ATORVASTATIN
     Indication: BLOOD CHOLESTEROL ABNORMAL
     Route: 048
  6. LOSER [Concomitant]
     Indication: BLOOD PRESSURE ABNORMAL
     Dosage: EVERY 12 HOURS
     Route: 048

REACTIONS (2)
  - COVID-19 [Recovered/Resolved]
  - Blood glucose increased [Recovered/Resolved]

NARRATIVE: CASE EVENT DATE: 20200630
